FAERS Safety Report 7043622-4 (Version None)
Quarter: 2010Q4

REPORT INFORMATION
  Report Type: 
  Country: None (occurrence: None)
  Receive Date: 20101013
  Receipt Date: 20101004
  Transmission Date: 20110411
  Serious: Yes (Hospitalization, Other)
  Sender: FDA-Public Use
  Company Number: B0677933A

PATIENT
  Age: 74 Year
  Sex: Male

DRUGS (10)
  1. KEPPRA [Suspect]
     Route: 065
     Dates: start: 20100501, end: 20100501
  2. REVATIO [Suspect]
     Indication: PULMONARY HYPERTENSION
     Dosage: 20MG THREE TIMES PER DAY
     Route: 048
     Dates: start: 20070101, end: 20100606
  3. DILANTIN [Suspect]
     Route: 065
     Dates: start: 20100101
  4. COREG [Suspect]
     Route: 048
  5. BUMETANIDE [Concomitant]
  6. PREDNISOLONE [Concomitant]
  7. SPIRONOLACTONE [Concomitant]
  8. SYNTHROID [Concomitant]
  9. WARFARIN SODIUM [Concomitant]
  10. ARANESP [Concomitant]

REACTIONS (9)
  - ABASIA [None]
  - CONVULSION [None]
  - DYSPNOEA [None]
  - FATIGUE [None]
  - FLUSHING [None]
  - HAEMOGLOBIN DECREASED [None]
  - HEARING IMPAIRED [None]
  - HEART RATE IRREGULAR [None]
  - OVERDOSE [None]
